FAERS Safety Report 9709206 (Version 2)
Quarter: 2013Q4

REPORT INFORMATION
  Report Type: Spontaneous
  Country: US (occurrence: US)
  Receive Date: 20131125
  Receipt Date: 20131205
  Transmission Date: 20140711
  Serious: Yes (Congenital Anomaly, Other)
  Sender: FDA-Public Use
  Company Number: US-FRI-1000051723

PATIENT
  Age: 0 Day
  Sex: Female

DRUGS (6)
  1. CELEXA [Suspect]
     Indication: DEPRESSION
     Dosage: 20 MG
     Route: 064
     Dates: end: 20030529
  2. CELEXA [Suspect]
     Indication: PANIC DISORDER
     Dosage: 30 MG
     Route: 064
     Dates: start: 20030530, end: 2003
  3. SPIRONOLACTONE [Concomitant]
     Indication: DYSMENORRHOEA
     Dosage: 25 MG
     Route: 048
     Dates: start: 20010425
  4. DICYCLOMINE [Concomitant]
     Indication: IRRITABLE BOWEL SYNDROME
  5. LORAZEPAM [Concomitant]
     Indication: ANXIETY
     Dosage: 1 MG EVERY 6-8 HOURS AS NEEDED
     Route: 048
     Dates: start: 20010425
  6. PRENATAL VITAMIN [Concomitant]

REACTIONS (3)
  - Fallot^s tetralogy [Unknown]
  - Congenital pulmonary valve atresia [Unknown]
  - Tachycardia [Unknown]
